FAERS Safety Report 21267861 (Version 5)
Quarter: 2022Q4

REPORT INFORMATION
  Report Type: Spontaneous
  Country: RU (occurrence: RU)
  Receive Date: 20220829
  Receipt Date: 20221010
  Transmission Date: 20230113
  Serious: Yes (Life-Threatening, Hospitalization, Other)
  Sender: FDA-Public Use
  Company Number: RU-MLMSERVICE-20220815-3730748-1

PATIENT
  Age: 60 Year
  Sex: Female
  Weight: 71 kg

DRUGS (9)
  1. ATORVASTATIN CALCIUM [Suspect]
     Active Substance: ATORVASTATIN CALCIUM
     Indication: Cardiovascular disorder
     Dosage: 20 MG; 1X/DAY GENERIC UNBRANDED
     Route: 065
     Dates: start: 201812, end: 20190301
  2. ATORVASTATIN CALCIUM [Suspect]
     Active Substance: ATORVASTATIN CALCIUM
     Indication: Dyslipidaemia
  3. EMPAGLIFLOZIN [Suspect]
     Active Substance: EMPAGLIFLOZIN
     Indication: Type 2 diabetes mellitus
     Dosage: 10 MG; 1X/DAY IN THE MORNING
     Dates: end: 201903
  4. insulin TOUJEO [Concomitant]
     Indication: Type 2 diabetes mellitus
     Dosage: 32 IU; 1X/DAY SUBCUTANEOUSLY (SC) AT 08:00 A.M
     Route: 058
     Dates: start: 2011
  5. HYDROCHLOROTHIAZIDE [Concomitant]
     Active Substance: HYDROCHLOROTHIAZIDE
     Indication: Hypertension
     Dosage: 12.5 MG; 1X/DAY IN THE MORNING
     Dates: start: 2005
  6. METFORMIN [Concomitant]
     Active Substance: METFORMIN HYDROCHLORIDE
     Indication: Type 2 diabetes mellitus
     Dosage: 1000 MG; 2X/DAY
     Dates: end: 201903
  7. Rosinsuline S [Concomitant]
     Indication: Type 2 diabetes mellitus
     Dosage: 8 IU; 1:00 PM.-8 U, 5:00 PM.-8 USC IN ABDOMEN WITH DOSE ADJUSTMENT FOR GLYCEMIC LEVELS
     Route: 058
  8. Rosinsuline S [Concomitant]
     Dosage: 10 IU; 1X/DAY;  ROSINSULIN S 08:00 A.M. -10 U
     Route: 058
  9. ENALAPRIL [Concomitant]
     Active Substance: ENALAPRIL
     Indication: Hypertension
     Dosage: 20 MG; 2X/DAY
     Dates: start: 2005

REACTIONS (5)
  - Electrocardiogram QT prolonged [Recovered/Resolved]
  - Hypokalaemia [Recovered/Resolved]
  - Hepatic cytolysis [Recovered/Resolved]
  - Rhabdomyolysis [Recovered/Resolved]
  - Metabolic alkalosis [Recovered/Resolved]

NARRATIVE: CASE EVENT DATE: 20190301
